FAERS Safety Report 21038973 (Version 1)
Quarter: 2022Q3

REPORT INFORMATION
  Report Type: Spontaneous
  Country: US (occurrence: US)
  Receive Date: 20220704
  Receipt Date: 20220704
  Transmission Date: 20221027
  Serious: Yes (Hospitalization)
  Sender: FDA-Public Use
  Company Number: US-SANOFI-01169250

PATIENT
  Age: 73 Year
  Sex: Female

DRUGS (1)
  1. AUBAGIO [Suspect]
     Active Substance: TERIFLUNOMIDE
     Indication: Multiple sclerosis
     Dosage: 14 MG, QD
     Dates: start: 202202

REACTIONS (4)
  - Chest pain [Unknown]
  - Mental status changes [Unknown]
  - General physical health deterioration [Unknown]
  - Poor personal hygiene [Unknown]

NARRATIVE: CASE EVENT DATE: 20220101
